FAERS Safety Report 7774655-8 (Version None)
Quarter: 2011Q3

REPORT INFORMATION
  Report Type: 
  Country: None (occurrence: None)
  Receive Date: 20110923
  Receipt Date: 20110919
  Transmission Date: 20111222
  Serious: Yes (Other)
  Sender: FDA-Public Use
  Company Number: US-PFIZER INC-2011192354

PATIENT
  Sex: Female
  Weight: 70.3 kg

DRUGS (2)
  1. ACETYLSALICYLIC ACID [Concomitant]
     Dosage: UNK
  2. ESTRING [Suspect]
     Dosage: UNK
     Route: 067
     Dates: start: 20110101

REACTIONS (4)
  - THYROID DISORDER [None]
  - BLOOD CHOLESTEROL ABNORMAL [None]
  - CONDITION AGGRAVATED [None]
  - BLOOD PRESSURE ABNORMAL [None]
